FAERS Safety Report 12178597 (Version 2)
Quarter: 2016Q3

REPORT INFORMATION
  Report Type: Spontaneous
  Country: US (occurrence: US)
  Receive Date: 20160315
  Receipt Date: 20160920
  Transmission Date: 20161109
  Serious: No
  Sender: FDA-Public Use
  Company Number: US-009507513-1603USA002877

PATIENT
  Age: 27 Year
  Sex: Female
  Weight: 104.2 kg

DRUGS (1)
  1. NEXPLANON [Suspect]
     Active Substance: ETONOGESTREL
     Indication: CONTRACEPTION
     Dosage: 1 ROD PER 3 YEARS
     Route: 059
     Dates: start: 20160226

REACTIONS (6)
  - Complication of device insertion [Recovered/Resolved]
  - Implant site swelling [Recovered/Resolved]
  - Implant site erythema [Recovered/Resolved]
  - Device deployment issue [Recovered/Resolved]
  - Device expulsion [Recovered/Resolved]
  - Device difficult to use [Recovered/Resolved]

NARRATIVE: CASE EVENT DATE: 20160226
